FAERS Safety Report 17195432 (Version 1)
Quarter: 2019Q4

REPORT INFORMATION
  Report Type: Spontaneous
  Country: IT (occurrence: IT)
  Receive Date: 20191224
  Receipt Date: 20191224
  Transmission Date: 20200122
  Serious: Yes (Hospitalization)
  Sender: FDA-Public Use
  Company Number: IT-TEVA-2019-IT-1156023

PATIENT
  Age: 74 Year
  Sex: Male

DRUGS (6)
  1. LUVION [Concomitant]
  2. COUMADIN [Concomitant]
     Active Substance: WARFARIN SODIUM
  3. BISOPROLOL HEMIFUMARATE [Suspect]
     Active Substance: BISOPROLOL FUMARATE
     Dosage: 2.5 MG
     Route: 048
     Dates: start: 20190101, end: 20191029
  4. DILZENE 120 MG COMPRESSE A RILASCIO PROLUNGATO [Suspect]
     Active Substance: DILTIAZEM HYDROCHLORIDE
     Dosage: 2 DOSAGE FORMS
     Route: 048
     Dates: start: 20190101, end: 20191029
  5. GLUCOPHAGE [Concomitant]
     Active Substance: METFORMIN HYDROCHLORIDE
  6. LANOXIN [Suspect]
     Active Substance: DIGOXIN
     Route: 048
     Dates: start: 20190101, end: 20191029

REACTIONS (1)
  - Bradyarrhythmia [Recovered/Resolved]

NARRATIVE: CASE EVENT DATE: 20191029
